FAERS Safety Report 23989656 (Version 2)
Quarter: 2025Q4

REPORT INFORMATION
  Report Type: Spontaneous
  Country: US (occurrence: US)
  Receive Date: 20240619
  Receipt Date: 20251205
  Transmission Date: 20260117
  Serious: Yes (Other)
  Sender: COOPERSURGICAL
  Company Number: US-COOPERSURGICAL, INC.-2024CPS001717

PATIENT
  Age: 34 Year
  Sex: Female
  Weight: 56.689 kg

DRUGS (1)
  1. PARAGARD T 380A [Suspect]
     Active Substance: COPPER
     Dosage: UNK
     Route: 015
     Dates: start: 2009, end: 20181121

REACTIONS (20)
  - Device breakage [Recovered/Resolved]
  - Foreign body in reproductive tract [Recovered/Resolved]
  - Complication of device removal [Recovered/Resolved]
  - Embedded device [Recovered/Resolved]
  - Anxiety [Unknown]
  - Emotional distress [Unknown]
  - Trigger points [Unknown]
  - Pelvic floor dysfunction [Unknown]
  - Coital bleeding [Unknown]
  - Pruritus genital [Unknown]
  - Vulval disorder [Unknown]
  - Pain [Unknown]
  - Heavy menstrual bleeding [Unknown]
  - Abdominal pain [Unknown]
  - Dysmenorrhoea [Unknown]
  - Abnormal uterine bleeding [Unknown]
  - Menstruation irregular [Unknown]
  - Vaginal discharge [Unknown]
  - Bacterial vaginosis [Unknown]
  - Pelvic pain [Unknown]

NARRATIVE: CASE EVENT DATE: 20181110
